FAERS Safety Report 18663013 (Version 1)
Quarter: 2020Q4

REPORT INFORMATION
  Report Type: Spontaneous
  Country: FI (occurrence: FI)
  Receive Date: 20201224
  Receipt Date: 20201224
  Transmission Date: 20210114
  Serious: Yes (Other)
  Sender: FDA-Public Use
  Company Number: FI-009507513-2012FIN008388

PATIENT
  Age: 74 Year
  Sex: Male

DRUGS (5)
  1. BENECOL (MARGARINE) [Suspect]
     Active Substance: MARGARINE
     Indication: BLOOD CHOLESTEROL INCREASED
     Dosage: UNK
     Dates: start: 2013
  2. BISOPROLOL [Concomitant]
     Active Substance: BISOPROLOL
     Indication: HYPERTENSION
     Dosage: ONE TABLET A DAY
     Route: 048
  3. CARDACE (RAMIPRIL) [Concomitant]
     Active Substance: RAMIPRIL
     Indication: HYPERTENSION
     Dosage: HALF OF THE TABLET IN THE MORNINGS AND EVENINGS
     Route: 048
  4. GLIVEC [Concomitant]
     Active Substance: IMATINIB MESYLATE
     Indication: GASTROINTESTINAL STROMAL TUMOUR
     Dosage: UNKNOWN (SUMMER)
     Dates: start: 2020
  5. EZETROL [Suspect]
     Active Substance: EZETIMIBE
     Indication: BLOOD CHOLESTEROL INCREASED
     Dosage: 10 MG TABLET A DAY
     Route: 048
     Dates: start: 2012

REACTIONS (2)
  - Blood cholesterol decreased [Unknown]
  - Gastrointestinal stromal tumour [Unknown]

NARRATIVE: CASE EVENT DATE: 202006
